FAERS Safety Report 10969713 (Version 1)
Quarter: 2015Q1

REPORT INFORMATION
  Report Type: Spontaneous
  Country: US (occurrence: None)
  Receive Date: 20150226
  Receipt Date: 20150226
  Transmission Date: 20150721
  Serious: No
  Sender: FDA-Public Use
  Company Number: TPA2010A05313

PATIENT
  Age: 79 Year
  Sex: Female
  Weight: 71.22 kg

DRUGS (2)
  1. ULORIC [Suspect]
     Active Substance: FEBUXOSTAT
     Indication: GOUT
     Route: 048
     Dates: start: 201009, end: 20101005
  2. MICARDIS [Concomitant]
     Active Substance: TELMISARTAN

REACTIONS (2)
  - Rash macular [None]
  - Rash [None]

NARRATIVE: CASE EVENT DATE: 2010
